FAERS Safety Report 17677321 (Version 1)
Quarter: 2020Q2

REPORT INFORMATION
  Report Type: Spontaneous
  Country: US (occurrence: US)
  Receive Date: 20200415
  Receipt Date: 20200415
  Transmission Date: 20200714
  Serious: Yes (Life-Threatening, Hospitalization)
  Sender: FDA-Public Use
  Company Number: None

PATIENT
  Age: 64 Year
  Sex: Male

DRUGS (1)
  1. MEROPENEM (MEROPENEM 500MG/VIL INJ, 100ML) [Suspect]
     Active Substance: MEROPENEM
     Indication: ARTHRITIS INFECTIVE
     Dosage: ?          OTHER ROUTE:IV?
     Dates: start: 20190216, end: 20190216

REACTIONS (6)
  - Respiratory distress [None]
  - Anaphylactic reaction [None]
  - Renal replacement therapy [None]
  - Drug hypersensitivity [None]
  - Angioedema [None]
  - Pruritus [None]

NARRATIVE: CASE EVENT DATE: 20190216
